FAERS Safety Report 19955504 (Version 2)
Quarter: 2021Q4

REPORT INFORMATION
  Report Type: Report from Study
  Country: US (occurrence: US)
  Receive Date: 20211014
  Receipt Date: 20211117
  Transmission Date: 20220303
  Serious: Yes (Death)
  Sender: FDA-Public Use
  Company Number: US-ABBVIE-21K-163-4119262-00

PATIENT
  Age: 70 Year
  Sex: Female
  Weight: 73.725 kg

DRUGS (5)
  1. VENCLEXTA [Suspect]
     Active Substance: VENETOCLAX
     Indication: Myeloid leukaemia
     Route: 048
  2. RITUXAN [Suspect]
     Active Substance: RITUXIMAB
     Indication: Rheumatoid arthritis
     Dosage: DAY 1
     Route: 042
     Dates: start: 20181203, end: 20181203
  3. RITUXAN [Suspect]
     Active Substance: RITUXIMAB
     Indication: Rheumatoid arthritis
     Dosage: DAY 15
     Route: 042
     Dates: start: 20181217, end: 20181217
  4. RITUXAN [Suspect]
     Active Substance: RITUXIMAB
     Dosage: ONE TIME DOSE
     Route: 042
     Dates: start: 20200825, end: 20200825
  5. RITUXAN [Suspect]
     Active Substance: RITUXIMAB
     Dosage: ONE TIME DOSE
     Route: 042
     Dates: start: 20200908, end: 20200908

REACTIONS (2)
  - Death [Fatal]
  - Off label use [Unknown]

NARRATIVE: CASE EVENT DATE: 20210704
